FAERS Safety Report 7889252-3 (Version None)
Quarter: 2011Q4

REPORT INFORMATION
  Report Type: 
  Country: None (occurrence: None)
  Receive Date: 20111103
  Receipt Date: 20111025
  Transmission Date: 20120403
  Serious: Yes (Death, Hospitalization)
  Sender: FDA-Public Use
  Company Number: JP-MERCK-1107USA01111

PATIENT
  Age: 53 Year
  Sex: Male

DRUGS (5)
  1. GLUFAST [Concomitant]
     Route: 065
     Dates: start: 20040101, end: 20110702
  2. GLUCOBAY [Concomitant]
     Indication: TYPE 2 DIABETES MELLITUS
     Route: 065
     Dates: start: 20040101, end: 20110702
  3. PREDNISOLONE [Concomitant]
     Route: 065
     Dates: start: 20110608, end: 20110702
  4. BEZATOL SR [Concomitant]
     Indication: HYPERLIPIDAEMIA
     Route: 065
     Dates: start: 20040101, end: 20110702
  5. JANUVIA [Suspect]
     Indication: TYPE 2 DIABETES MELLITUS
     Route: 048
     Dates: start: 20110506, end: 20110602

REACTIONS (1)
  - INTERSTITIAL LUNG DISEASE [None]
